FAERS Safety Report 15203464 (Version 2)
Quarter: 2022Q1

REPORT INFORMATION
  Report Type: Spontaneous
  Country: CH (occurrence: CH)
  Receive Date: 20180726
  Receipt Date: 20220128
  Transmission Date: 20220423
  Serious: Yes (Hospitalization)
  Sender: FDA-Public Use
  Company Number: CH-SM-2018-10607

PATIENT
  Age: 79 Year
  Sex: Male

DRUGS (8)
  1. VANCOCIN [Suspect]
     Active Substance: VANCOMYCIN HYDROCHLORIDE
     Dosage: INITIAL DOSE (LOADING DOSE) 20180530: 2000 MG TOTAL
     Route: 041
     Dates: start: 20180528, end: 20180530
  2. FLUCLOXACILLIN [Suspect]
     Active Substance: FLUCLOXACILLIN
     Dosage: 12 GRAM DAILY;
     Route: 041
     Dates: start: 20180530, end: 20180603
  3. MEROPENEM [Suspect]
     Active Substance: MEROPENEM
     Dosage: 6 GRAM DAILY;
     Route: 041
     Dates: start: 20180528, end: 20180530
  4. PANTOZOL [Suspect]
     Active Substance: PANTOPRAZOLE SODIUM
     Dosage: 40 MILLIGRAM DAILY;
     Route: 048
     Dates: start: 20180530
  5. KEPPRA [Concomitant]
     Active Substance: LEVETIRACETAM
     Route: 048
     Dates: start: 20180530, end: 20180602
  6. QUETIAPINE [Concomitant]
     Active Substance: QUETIAPINE
     Dosage: 0-0-0-1
     Route: 065
     Dates: start: 20180531, end: 20180618
  7. FRAGMIN [Concomitant]
     Active Substance: DALTEPARIN SODIUM
     Route: 058
     Dates: start: 20180530, end: 20180618
  8. MORPHINE HYDROCHLORIDE [Concomitant]
     Active Substance: MORPHINE HYDROCHLORIDE
     Dosage: 10 MILLIGRAM DAILY;
     Route: 048
     Dates: start: 20180530, end: 20180602

REACTIONS (2)
  - Acute kidney injury [Unknown]
  - Renal tubular injury [Unknown]

NARRATIVE: CASE EVENT DATE: 20180602
